FAERS Safety Report 17601387 (Version 2)
Quarter: 2020Q4

REPORT INFORMATION
  Report Type: Spontaneous
  Country: FR (occurrence: FR)
  Receive Date: 20200331
  Receipt Date: 20201013
  Transmission Date: 20210113
  Serious: Yes (Hospitalization)
  Sender: FDA-Public Use
  Company Number: FR-TEVA-2020-FR-1212742

PATIENT
  Age: 55 Year
  Sex: Female
  Weight: 72 kg

DRUGS (12)
  1. LEVOTHYROX 150 MICROGRAMMES, COMPRIME SECABLE [Suspect]
     Active Substance: LEVOTHYROXINE SODIUM
     Dosage: 1 DF
     Route: 048
  2. AMLODIPINE [Suspect]
     Active Substance: AMLODIPINE BESYLATE
     Dosage: 10 MG
     Route: 048
  3. TEGRETOL [Suspect]
     Active Substance: CARBAMAZEPINE
     Dosage: 2DOSAGEFORM
     Route: 048
  4. ACIDE FOLINIQUE [Suspect]
     Active Substance: LEUCOVORIN
     Indication: PROPHYLAXIS
     Dosage: UNKNOWN
     Route: 041
     Dates: start: 20190710, end: 20190724
  5. OXALIPLATINE [Suspect]
     Active Substance: OXALIPLATIN
     Indication: OESOPHAGEAL ADENOCARCINOMA
     Dosage: UNKNOWN
     Route: 041
     Dates: start: 20190710, end: 20190724
  6. EMEND [Suspect]
     Active Substance: APREPITANT
     Indication: PROPHYLAXIS OF NAUSEA AND VOMITING
     Dosage: 1 DF
     Route: 048
     Dates: start: 20190710, end: 20190724
  7. SETOFILM 8 MG, FILM ORODISPERSIBLE [Suspect]
     Active Substance: ONDANSETRON
     Indication: PRODUCT USED FOR UNKNOWN INDICATION
     Dosage: 1 DF?SETOFILM 8 MG, FILM ORODISPERSIBLE
     Route: 048
     Dates: start: 20190710
  8. CORTANCYL 20 MG, COMPRIME [Concomitant]
     Active Substance: PREDNISONE
     Dosage: 1 DF
     Route: 048
     Dates: start: 20190710
  9. REFRESH, COLLYRE EN RECIPIENT UNIDOSE [Concomitant]
     Dosage: 4 GTT
     Route: 047
  10. TRAVOPROST. [Concomitant]
     Active Substance: TRAVOPROST
     Dosage: 1 GTT
     Route: 047
  11. FLUOROURACILE [Suspect]
     Active Substance: FLUOROURACIL
     Indication: OESOPHAGEAL ADENOCARCINOMA
     Dosage: UNKNOWN
     Route: 041
     Dates: start: 20190710, end: 20190724
  12. TELMISARTAN. [Suspect]
     Active Substance: TELMISARTAN
     Dosage: 40 MG
     Route: 048

REACTIONS (1)
  - Subacute cutaneous lupus erythematosus [Recovering/Resolving]

NARRATIVE: CASE EVENT DATE: 20190720
